FAERS Safety Report 15167204 (Version 1)
Quarter: 2018Q3

REPORT INFORMATION
  Report Type: Spontaneous
  Country: US (occurrence: US)
  Receive Date: 20180719
  Receipt Date: 20180719
  Transmission Date: 20181010
  Serious: No
  Sender: FDA-Public Use
  Company Number: US-FRESENIUS KABI-FK201808015

PATIENT
  Age: 19 Year
  Sex: Female

DRUGS (1)
  1. IFOSFAMIDE (MANUFACTURER UNKNOWN) [Suspect]
     Active Substance: IFOSFAMIDE
     Indication: PRODUCT USED FOR UNKNOWN INDICATION
     Route: 065

REACTIONS (1)
  - Eyelid ptosis [Unknown]
